FAERS Safety Report 20657395 (Version 1)
Quarter: 2022Q1

REPORT INFORMATION
  Report Type: Spontaneous
  Country: FR (occurrence: FR)
  Receive Date: 20220331
  Receipt Date: 20220331
  Transmission Date: 20220424
  Serious: Yes (Congenital Anomaly)
  Sender: FDA-Public Use
  Company Number: None

PATIENT
  Age: 34 Year
  Sex: Female
  Weight: 60 kg

DRUGS (2)
  1. VALPROIC ACID [Suspect]
     Active Substance: VALPROIC ACID
     Indication: Foetal exposure during pregnancy
     Dosage: 3 DOSAGE FORMS DAILY; 3 TABS/D NOS
     Route: 064
     Dates: start: 19861001, end: 19870606
  2. PHENOBARBITAL [Suspect]
     Active Substance: PHENOBARBITAL
     Indication: Foetal exposure during pregnancy
     Dosage: 2 DOSAGE FORMS DAILY; 2 TABS/D NOS
     Route: 064
     Dates: start: 19861001, end: 19870606

REACTIONS (2)
  - Macroglossia [Not Recovered/Not Resolved]
  - Neurodevelopmental disorder [Not Recovered/Not Resolved]

NARRATIVE: CASE EVENT DATE: 19870101
